FAERS Safety Report 23952497 (Version 1)
Quarter: 2024Q2

REPORT INFORMATION
  Report Type: Spontaneous
  Country: US (occurrence: US)
  Receive Date: 20240607
  Receipt Date: 20240607
  Transmission Date: 20240716
  Serious: Yes (Hospitalization, Other)
  Sender: FDA-Public Use
  Company Number: US-INSUD PHARMA-2405US04453

PATIENT

DRUGS (1)
  1. ESTARYLLA [Suspect]
     Active Substance: ETHINYL ESTRADIOL\NORGESTIMATE
     Indication: Heavy menstrual bleeding
     Dosage: UNK
     Route: 048

REACTIONS (3)
  - Atypical haemolytic uraemic syndrome [Recovering/Resolving]
  - Acute kidney injury [Recovering/Resolving]
  - Anuria [Recovering/Resolving]
